FAERS Safety Report 4305749-7 (Version None)
Quarter: 2004Q1

REPORT INFORMATION
  Report Type: 
  Country: None (occurrence: None)
  Receive Date: 20040225
  Receipt Date: 20040209
  Transmission Date: 20041129
  Serious: Yes (Other)
  Sender: FDA-Public Use
  Company Number: 8005410

PATIENT
  Age: 20 Month
  Sex: 0

DRUGS (1)
  1. LEVETIRACETAM [Suspect]
     Dosage: TRP
     Route: 064
     Dates: end: 20020601

REACTIONS (4)
  - ATTENTION DEFICIT/HYPERACTIVITY DISORDER [None]
  - MATERNAL DRUGS AFFECTING FOETUS [None]
  - SENSORY INTEGRATIVE DYSFUNCTION [None]
  - SPEECH DISORDER DEVELOPMENTAL [None]
